FAERS Safety Report 21021886 (Version 1)
Quarter: 2022Q2

REPORT INFORMATION
  Report Type: Spontaneous
  Country: US (occurrence: None)
  Receive Date: 20220628
  Receipt Date: 20220628
  Transmission Date: 20220721
  Serious: No
  Sender: FDA-Public Use
  Company Number: None

PATIENT
  Sex: Female
  Weight: 93.44 kg

DRUGS (12)
  1. EVEROLIMUS [Suspect]
     Active Substance: EVEROLIMUS
     Indication: Breast cancer female
     Dosage: FREQUENCY : DAILY;?
     Route: 048
  2. ANASTROZOLE [Concomitant]
  3. DIAZEPAM [Concomitant]
     Active Substance: DIAZEPAM
  4. ERGOCALCIFEROL [Concomitant]
  5. MAGNESIUM OXIDE [Concomitant]
     Active Substance: MAGNESIUM OXIDE
  6. ALBUTEROL SULFATE [Concomitant]
  7. HYZAAR [Concomitant]
     Active Substance: HYDROCHLOROTHIAZIDE\LOSARTAN POTASSIUM
  8. SYMBICORT [Concomitant]
     Active Substance: BUDESONIDE\FORMOTEROL FUMARATE DIHYDRATE
  9. TUMS [Concomitant]
     Active Substance: CALCIUM CARBONATE
  10. ONDANSETROL [Concomitant]
  11. ZOMETA [Concomitant]
     Active Substance: ZOLEDRONIC ACID
  12. DIPHENHYDRAMINE HYDROCHLORIDE\LIDOCAINE HYDROCHLORIDE\NYSTATIN [Concomitant]
     Active Substance: DIPHENHYDRAMINE HYDROCHLORIDE\LIDOCAINE HYDROCHLORIDE\NYSTATIN

REACTIONS (4)
  - Disease progression [None]
  - Gastrointestinal disorder [None]
  - Oedema [None]
  - Movement disorder [None]
